FAERS Safety Report 17749625 (Version 1)
Quarter: 2020Q2

REPORT INFORMATION
  Report Type: Spontaneous
  Country: US (occurrence: US)
  Receive Date: 20200506
  Receipt Date: 20200506
  Transmission Date: 20200714
  Serious: No
  Sender: FDA-Public Use
  Company Number: US-TEVA-2020-US-1229936

PATIENT
  Sex: Male

DRUGS (2)
  1. QUETIAPINE. [Suspect]
     Active Substance: QUETIAPINE
     Indication: DEPRESSION
  2. QUETIAPINE. [Suspect]
     Active Substance: QUETIAPINE
     Indication: GENERALISED ANXIETY DISORDER
     Dosage: USING AROUND 20 YEARS

REACTIONS (3)
  - Disturbance in attention [Unknown]
  - Therapeutic product effect incomplete [Unknown]
  - Feeling abnormal [Unknown]
